FAERS Safety Report 22112600 (Version 1)
Quarter: 2023Q1

REPORT INFORMATION
  Report Type: Report from Study
  Country: US (occurrence: None)
  Receive Date: 20230319
  Receipt Date: 20230319
  Transmission Date: 20230417
  Serious: Yes (Other)
  Sender: FDA-Public Use
  Company Number: US-ROCHE-3312030

PATIENT

DRUGS (1)
  1. OBINUTUZUMAB [Suspect]
     Active Substance: OBINUTUZUMAB
     Indication: Chronic graft versus host disease
     Dosage: RECEIVED 3 DOSES ON STUDY, PATIENT COMPLETED TX/LAST DOSE ON 06/MAY/2020 AND OFF THE STUDY ON 15/JUL
     Route: 042
     Dates: start: 20191106

REACTIONS (1)
  - Acute myeloid leukaemia [Unknown]
